FAERS Safety Report 18529259 (Version 3)
Quarter: 2021Q1

REPORT INFORMATION
  Report Type: Spontaneous
  Country: US (occurrence: US)
  Receive Date: 20201120
  Receipt Date: 20210119
  Transmission Date: 20210419
  Serious: Yes (Life-Threatening, Hospitalization, Other)
  Sender: FDA-Public Use
  Company Number: US-PFIZER INC-2020459307

PATIENT
  Age: 76 Year
  Sex: Male
  Weight: 77.11 kg

DRUGS (17)
  1. FAMOTIDINE. [Concomitant]
     Active Substance: FAMOTIDINE
     Indication: CARDIAC DISORDER
     Dosage: 40 MG
     Dates: start: 202003
  2. XELJANZ [Suspect]
     Active Substance: TOFACITINIB CITRATE
     Indication: RHEUMATOID ARTHRITIS
     Dosage: 5 MG, 2X/DAY
     Route: 048
     Dates: start: 202001, end: 202004
  3. METOPROLOL. [Concomitant]
     Active Substance: METOPROLOL
     Indication: DYSPNOEA
  4. METHOTREXATE. [Concomitant]
     Active Substance: METHOTREXATE
     Dosage: UNK
     Dates: start: 202012
  5. METHOTREXATE. [Concomitant]
     Active Substance: METHOTREXATE
     Indication: RHEUMATOID ARTHRITIS
     Dosage: UNK, WEEKLY (1?25MG INJECTION)
  6. XELJANZ [Suspect]
     Active Substance: TOFACITINIB CITRATE
     Dosage: 5 MG
     Dates: start: 20200115, end: 20201010
  7. METOPROLOL. [Concomitant]
     Active Substance: METOPROLOL
     Indication: CARDIAC DISORDER
     Dosage: 250 MG, 1X/DAY (250MG/DAY)
     Dates: start: 202003
  8. FUROSEMIDE. [Concomitant]
     Active Substance: FUROSEMIDE
     Indication: CARDIAC DISORDER
     Dosage: 80 MG
     Dates: start: 202003
  9. K?TAB [Concomitant]
     Active Substance: POTASSIUM CHLORIDE
     Indication: DYSPNOEA
  10. FUROSEMIDE. [Concomitant]
     Active Substance: FUROSEMIDE
     Indication: DYSPNOEA
  11. K?TAB [Concomitant]
     Active Substance: POTASSIUM CHLORIDE
     Indication: CARDIAC DISORDER
     Dosage: 40 MEQ
     Dates: start: 202003
  12. LASIX + K [Concomitant]
     Active Substance: FUROSEMIDE\POTASSIUM CHLORIDE
     Dosage: UNK
  13. WARFARIN [Concomitant]
     Active Substance: WARFARIN
     Indication: CARDIAC DISORDER
     Dosage: 0.5 MG (.5MG 4 DAYS)
     Dates: start: 202003
  14. GABAPENTIN. [Concomitant]
     Active Substance: GABAPENTIN
     Indication: PAIN
     Dosage: 200 MG
     Dates: start: 202012
  15. WARFARIN [Concomitant]
     Active Substance: WARFARIN
     Indication: DYSPNOEA
     Dosage: 7.5 MG (7 AND A HALF MG 3 DAYS)
  16. TAMSULOSIN [Concomitant]
     Active Substance: TAMSULOSIN
     Indication: DYSURIA
     Dosage: 8 MG
  17. METHOTREXATE. [Concomitant]
     Active Substance: METHOTREXATE
     Indication: RHEUMATOID ARTHRITIS
     Dosage: UNK (CEASED OCT THROUGH NOV2020)

REACTIONS (22)
  - Pericarditis [Unknown]
  - Heart rate abnormal [Unknown]
  - Cardiac disorder [Unknown]
  - Loss of personal independence in daily activities [Unknown]
  - Asthenia [Unknown]
  - Dyspnoea [Not Recovered/Not Resolved]
  - White blood cell count increased [Unknown]
  - Red blood cell count decreased [Unknown]
  - Walking aid user [Unknown]
  - Vomiting [Unknown]
  - Feeding disorder [Unknown]
  - Near death experience [Unknown]
  - Herpes zoster [Not Recovered/Not Resolved]
  - Hypertension [Unknown]
  - Muscle strength abnormal [Unknown]
  - Musculoskeletal discomfort [Unknown]
  - Neuralgia [Not Recovered/Not Resolved]
  - Nerve injury [Not Recovered/Not Resolved]
  - Ear pain [Unknown]
  - Joint injury [Unknown]
  - Sepsis [Not Recovered/Not Resolved]
  - Ear pain [Unknown]

NARRATIVE: CASE EVENT DATE: 2020
